FAERS Safety Report 7070148-4 (Version None)
Quarter: 2010Q4

REPORT INFORMATION
  Report Type: 
  Country: None (occurrence: None)
  Receive Date: 20101028
  Receipt Date: 20100902
  Transmission Date: 20110411
  Serious: No
  Sender: FDA-Public Use
  Company Number: US-WYE-H17348710

PATIENT
  Age: 9 Year
  Sex: Female

DRUGS (1)
  1. CHILDREN'S ADVIL [Suspect]
     Indication: PAIN
     Dosage: 2.5 TSP EVERY
     Route: 048

REACTIONS (1)
  - THROAT IRRITATION [None]
